FAERS Safety Report 8430400 (Version 3)
Quarter: 2012Q4

REPORT INFORMATION
  Report Type: Spontaneous
  Country: US (occurrence: US)
  Receive Date: 20120228
  Receipt Date: 20121227
  Transmission Date: 20130627
  Serious: Yes (Death)
  Sender: FDA-Public Use
  Company Number: PHEH2012US004566

PATIENT
  Age: 65 Year
  Sex: Male

DRUGS (1)
  1. EXJADE [Suspect]
     Indication: IRON OVERLOAD
     Dosage: 1500 mg, daily
     Route: 048
     Dates: start: 20081203, end: 20120129

REACTIONS (2)
  - Malignant neoplasm progression [Fatal]
  - Myelodysplastic syndrome [None]
